FAERS Safety Report 6328251-X (Version None)
Quarter: 2009Q3

REPORT INFORMATION
  Report Type: 
  Country: None (occurrence: None)
  Receive Date: 20090825
  Receipt Date: 20090306
  Transmission Date: 20100115
  Serious: No
  Sender: FDA-Public Use
  Company Number: US-ABBOTT-09P-163-0502542-00

PATIENT
  Sex: Female

DRUGS (2)
  1. SYNTHROID [Suspect]
     Indication: THYROIDECTOMY
     Dates: start: 20090209, end: 20090209
  2. SYNTHROID [Suspect]
     Indication: THYROID CANCER

REACTIONS (1)
  - ACCIDENTAL DRUG INTAKE BY CHILD [None]
